FAERS Safety Report 8866570 (Version 1)
Quarter: 2012Q4

REPORT INFORMATION
  Report Type: 
  Country: US (occurrence: US)
  Receive Date: 20121025
  Receipt Date: 20121025
  Transmission Date: 20130627
  Serious: No
  Sender: FDA-Public Use
  Company Number: US-AMGEN-USASP2012012911

PATIENT
  Age: 53 Year
  Sex: Female
  Weight: 117.91 kg

DRUGS (6)
  1. ENBREL [Suspect]
     Indication: PRODUCT USED FOR UNKNOWN INDICATION
     Dosage: 50 mg, qwk
     Route: 058
  2. METHOTREXATE [Concomitant]
     Dosage: 2.5 mg, UNK
  3. FOLIC ACID [Concomitant]
     Dosage: 1 mg, UNK
  4. VITAMIN D /00107901/ [Concomitant]
     Dosage: UNK
  5. CALCIUM [Concomitant]
     Dosage: UNK
  6. VITAMIN C                          /00008001/ [Concomitant]
     Dosage: 500 mg, UNK

REACTIONS (2)
  - Dysphonia [Recovered/Resolved]
  - Nasal congestion [Recovered/Resolved]
